FAERS Safety Report 9269998 (Version 2)
Quarter: 2013Q2

REPORT INFORMATION
  Report Type: Spontaneous
  Country: DE (occurrence: DE)
  Receive Date: 20130503
  Receipt Date: 20130503
  Transmission Date: 20140414
  Serious: Yes (Life-Threatening, Hospitalization)
  Sender: FDA-Public Use
  Company Number: DE-TEVA-359110GER

PATIENT
  Age: 73 Year
  Sex: Female
  Weight: 90 kg

DRUGS (15)
  1. METFORMIN 850 [Suspect]
     Indication: TYPE 2 DIABETES MELLITUS
     Dosage: 1700 MILLIGRAM DAILY;
     Route: 048
     Dates: start: 2010
  2. ASS 100 [Concomitant]
     Dosage: 1 DOSAGE FORMS DAILY; 1-0-0
     Route: 048
  3. FURORESE 40 MG [Concomitant]
     Dosage: 2 DOSAGE FORMS DAILY;
     Route: 048
  4. HCT 25 MG [Concomitant]
     Dosage: 1 DOSAGE FORMS DAILY;
     Route: 048
  5. CAPTOPRIL 25MG [Concomitant]
     Dosage: 1 DOSAGE FORMS DAILY;
     Route: 048
  6. GLIMEPIRID 2 MG [Concomitant]
     Dosage: 1 DOSAGE FORMS DAILY;
     Route: 048
  7. NEURO-RATIOPHARM [Concomitant]
     Dosage: 1 DOSAGE FORMS DAILY;
     Route: 048
  8. ZOPICLON 7,5 MG [Concomitant]
     Dosage: 1 DOSAGE FORMS DAILY;
     Route: 048
  9. FENISTIL RET. 24 STD. [Concomitant]
     Dosage: 1 DOSAGE FORMS DAILY;
     Route: 048
  10. CEFUROXIM 500 MG [Concomitant]
     Dosage: 2 DOSAGE FORMS DAILY;
     Route: 048
  11. RAMIPRIL [Concomitant]
     Dosage: 10 MILLIGRAM DAILY;
     Route: 048
  12. ACTRAPHANE 30 PENFIL 100 I.E./ML 3 ML [Concomitant]
     Dosage: 15-3-8 IU
     Route: 058
  13. BISOPROLOL [Concomitant]
     Dosage: 2.5 MILLIGRAM DAILY;
     Route: 048
  14. NOVALGIN TROPFEN [Concomitant]
     Dosage: 90 GTT DAILY;
     Route: 048
  15. NITRENDIPIN [Concomitant]
     Dosage: 20 MILLIGRAM DAILY;
     Route: 048

REACTIONS (4)
  - Lactic acidosis [Recovered/Resolved]
  - Renal failure acute [Recovered/Resolved]
  - Hyperkalaemia [Recovered/Resolved]
  - Dialysis [None]
